FAERS Safety Report 14934291 (Version 3)
Quarter: 2018Q2

REPORT INFORMATION
  Report Type: Other
  Country: US (occurrence: US)
  Receive Date: 20180524
  Receipt Date: 20180625
  Transmission Date: 20180711
  Serious: Yes (Hospitalization)
  Sender: FDA-Public Use
  Company Number: US-ACORDA-ACO_150427_2018

PATIENT
  Age: 79 Year
  Sex: Female

DRUGS (1)
  1. AMPYRA [Suspect]
     Active Substance: DALFAMPRIDINE
     Indication: MULTIPLE SCLEROSIS
     Dosage: 10 MG, BID
     Route: 048
     Dates: start: 20180403

REACTIONS (10)
  - Back pain [Recovered/Resolved]
  - Tooth loss [Not Recovered/Not Resolved]
  - Balance disorder [Recovered/Resolved]
  - Spinal pain [Recovered/Resolved]
  - Headache [Recovered/Resolved]
  - Urinary tract infection [Recovered/Resolved]
  - Contusion [Unknown]
  - Erythema [Recovered/Resolved]
  - Hypertension [Recovered/Resolved]
  - Lip swelling [Unknown]

NARRATIVE: CASE EVENT DATE: 201805
